FAERS Safety Report 20637367 (Version 2)
Quarter: 2022Q4

REPORT INFORMATION
  Report Type: Spontaneous
  Country: US (occurrence: US)
  Receive Date: 20220325
  Receipt Date: 20221029
  Transmission Date: 20230113
  Serious: Yes (Hospitalization, Other)
  Sender: FDA-Public Use
  Company Number: US-MLMSERVICE-20220316-3435739-1

PATIENT
  Age: 67 Year
  Sex: Male

DRUGS (2)
  1. MOXIFLOXACIN [Suspect]
     Active Substance: MOXIFLOXACIN
     Indication: Nocardiosis
     Dosage: UNKNOWN
     Route: 065
  2. DOXYCYCLINE [Concomitant]
     Active Substance: DOXYCYCLINE
     Indication: Nocardiosis
     Dosage: HIGH-DOSE
     Route: 065

REACTIONS (2)
  - Aortic dissection [Unknown]
  - Toxicity to various agents [Unknown]
